FAERS Safety Report 18172032 (Version 1)
Quarter: 2020Q3

REPORT INFORMATION
  Report Type: Report from Study
  Country: None (occurrence: US)
  Receive Date: 20200820
  Receipt Date: 20200820
  Transmission Date: 20201103
  Serious: Yes (Hospitalization, Other)
  Sender: FDA-Public Use
  Company Number: US-ABBVIE-20K-163-3525734-00

PATIENT
  Sex: Female

DRUGS (1)
  1. RINVOQ [Suspect]
     Active Substance: UPADACITINIB
     Indication: RHEUMATOID ARTHRITIS
     Route: 048

REACTIONS (6)
  - Arthralgia [Not Recovered/Not Resolved]
  - Hospitalisation [Unknown]
  - Unevaluable event [Unknown]
  - Muscle spasms [Unknown]
  - Joint arthroplasty [Unknown]
  - Musculoskeletal disorder [Unknown]
